FAERS Safety Report 11125755 (Version 3)
Quarter: 2015Q3

REPORT INFORMATION
  Report Type: Report from Study
  Country: US (occurrence: US)
  Receive Date: 20150520
  Receipt Date: 20150918
  Transmission Date: 20151125
  Serious: Yes (Other)
  Sender: FDA-Public Use
  Company Number: US-SA-2015SA002574

PATIENT
  Age: 32 Year
  Sex: Female

DRUGS (2)
  1. AUBAGIO [Suspect]
     Active Substance: TERIFLUNOMIDE
     Indication: MULTIPLE SCLEROSIS
     Route: 048
     Dates: start: 20150107
  2. AUBAGIO [Suspect]
     Active Substance: TERIFLUNOMIDE
     Indication: MULTIPLE SCLEROSIS
     Route: 048
     Dates: start: 20141024, end: 20141229

REACTIONS (27)
  - Pneumonia [Recovering/Resolving]
  - Oropharyngeal pain [Unknown]
  - White blood cell count increased [Unknown]
  - Vaginal haemorrhage [Unknown]
  - Fatigue [Unknown]
  - Nasopharyngitis [Recovering/Resolving]
  - Cough [Not Recovered/Not Resolved]
  - Hypoaesthesia [Unknown]
  - Vertigo [Unknown]
  - Cough [Unknown]
  - Throat irritation [Unknown]
  - Vulvovaginal dryness [Unknown]
  - Multiple sclerosis relapse [Unknown]
  - Dysphonia [Unknown]
  - Contusion [Unknown]
  - Wheezing [Recovering/Resolving]
  - Streptococcal infection [Unknown]
  - Alopecia [Unknown]
  - Bronchitis [Unknown]
  - Cough [Recovering/Resolving]
  - Malaise [Unknown]
  - Hypersensitivity [Unknown]
  - Neuritis [Recovering/Resolving]
  - Chest discomfort [Recovering/Resolving]
  - Oral herpes [Unknown]
  - Rhinorrhoea [Unknown]
  - Diplopia [Unknown]

NARRATIVE: CASE EVENT DATE: 201410
